FAERS Safety Report 7107409-6 (Version None)
Quarter: 2010Q4

REPORT INFORMATION
  Report Type: 
  Country: None (occurrence: None)
  Receive Date: 20101111
  Receipt Date: 20101111
  Transmission Date: 20110411
  Serious: No
  Sender: FDA-Public Use
  Company Number: None

PATIENT
  Age: 80 Year
  Sex: Female
  Weight: 64 kg

DRUGS (8)
  1. EVISTA [Suspect]
     Indication: OSTEOPOROSIS
     Dosage: 60 MG ONCE DAILY PO
     Route: 048
     Dates: start: 20100801, end: 20100804
  2. EVISTA [Suspect]
     Indication: OSTEOPOROSIS
     Dosage: 60 MG ONCE DAILY PO
     Route: 048
     Dates: start: 20100807
  3. PRAVASTATIN [Concomitant]
  4. OMEPRAZOLE [Concomitant]
  5. ERGOCALCIFEROL [Concomitant]
  6. CHOLECALCIFEROL [Concomitant]
  7. CALCIUM [Concomitant]
  8. ASPIRIN [Concomitant]

REACTIONS (4)
  - DYSPNOEA [None]
  - LIP SWELLING [None]
  - NASAL CONGESTION [None]
  - SWOLLEN TONGUE [None]
